FAERS Safety Report 26112722 (Version 1)
Quarter: 2025Q4

REPORT INFORMATION
  Report Type: Spontaneous
  Country: EU (occurrence: EU)
  Receive Date: 20251202
  Receipt Date: 20251202
  Transmission Date: 20260117
  Serious: Yes (Other)
  Sender: SANDOZ
  Company Number: EU-002147023-NVSC2025LT110998

PATIENT
  Age: 60 Year
  Sex: Female

DRUGS (3)
  1. AZOPT [Suspect]
     Active Substance: BRINZOLAMIDE
     Indication: Glaucoma
     Dosage: 1 DRP, BID, MORNING AND EVENING, 5 MONTHS AGO
     Route: 065
  2. AZOPT [Suspect]
     Active Substance: BRINZOLAMIDE
     Indication: Cataract
  3. AZOPT [Suspect]
     Active Substance: BRINZOLAMIDE
     Indication: Macular degeneration

REACTIONS (5)
  - Corneal deposits [Recovering/Resolving]
  - Lacrimation increased [Recovering/Resolving]
  - Ocular hyperaemia [Recovering/Resolving]
  - Dry eye [Unknown]
  - Product use in unapproved indication [Unknown]
